FAERS Safety Report 20497026 (Version 2)
Quarter: 2022Q1

REPORT INFORMATION
  Report Type: Other
  Country: US (occurrence: None)
  Receive Date: 20220221
  Receipt Date: 20220313
  Transmission Date: 20220423
  Serious: No
  Sender: FDA-Public Use
  Company Number: US-ROCHE-3025504

PATIENT
  Age: 57 Year
  Sex: Female

DRUGS (5)
  1. OCREVUS [Suspect]
     Active Substance: OCRELIZUMAB
     Indication: Relapsing-remitting multiple sclerosis
     Dosage: SUBSEQUENT DOSE 600 MG EVERY 6 MONTHS
     Route: 042
     Dates: start: 20180813
  2. GABAPENTIN [Concomitant]
     Active Substance: GABAPENTIN
     Indication: Pain in extremity
     Route: 048
  3. MODAFINIL [Concomitant]
     Active Substance: MODAFINIL
     Dosage: TAKES IN THE MORNING
     Route: 048
  4. BACLOFEN [Concomitant]
     Active Substance: BACLOFEN
     Route: 048
  5. VITAMIN D3 [Concomitant]
     Active Substance: CHOLECALCIFEROL
     Route: 048

REACTIONS (2)
  - COVID-19 [Recovered/Resolved]
  - Asthenia [Not Recovered/Not Resolved]

NARRATIVE: CASE EVENT DATE: 20211224
